FAERS Safety Report 5460979-6 (Version None)
Quarter: 2007Q3

REPORT INFORMATION
  Report Type: 
  Country: None (occurrence: None)
  Receive Date: 20070822
  Receipt Date: 20070130
  Transmission Date: 20080115
  Serious: Yes (Disabling)
  Sender: FDA-Public Use
  Company Number: 2007007844

PATIENT
  Age: 75 Year
  Sex: Female
  Weight: 72.6 kg

DRUGS (1)
  1. NORVASC [Suspect]
     Indication: HYPERTENSION
     Dosage: 5 MG (5 MG, QD: EVERDAY)
     Dates: start: 19970101, end: 20070128

REACTIONS (2)
  - MUSCULAR WEAKNESS [None]
  - MYALGIA [None]
